FAERS Safety Report 7320801-X (Version None)
Quarter: 2011Q1

REPORT INFORMATION
  Report Type: 
  Country: None (occurrence: None)
  Receive Date: 20110228
  Receipt Date: 20110214
  Transmission Date: 20110831
  Serious: No
  Sender: FDA-Public Use
  Company Number: FR-ROCHE-759210

PATIENT
  Sex: Female
  Weight: 4 kg

DRUGS (1)
  1. TAMIFLU [Suspect]
     Dosage: 12 MG IN THE MORNING AND IN THE EVENING.
     Route: 048
     Dates: start: 20110201

REACTIONS (2)
  - NO ADVERSE EVENT [None]
  - INCORRECT DOSE ADMINISTERED [None]
